FAERS Safety Report 13660563 (Version 1)
Quarter: 2017Q2

REPORT INFORMATION
  Report Type: Spontaneous
  Country: US (occurrence: US)
  Receive Date: 20170616
  Receipt Date: 20170616
  Transmission Date: 20170830
  Serious: No
  Sender: FDA-Public Use
  Company Number: US-009507513-1706USA005723

PATIENT
  Sex: Female
  Weight: 63.5 kg

DRUGS (1)
  1. ZETIA [Suspect]
     Active Substance: EZETIMIBE

REACTIONS (2)
  - Diarrhoea [Unknown]
  - Dehydration [Unknown]
